FAERS Safety Report 17429144 (Version 3)
Quarter: 2020Q1

REPORT INFORMATION
  Report Type: Spontaneous
  Country: JP (occurrence: JP)
  Receive Date: 20200218
  Receipt Date: 20200228
  Transmission Date: 20200409
  Serious: Yes (Death)
  Sender: FDA-Public Use
  Company Number: JP-ABBVIE-20K-087-3281368-00

PATIENT
  Age: 58 Year
  Sex: Male

DRUGS (1)
  1. HUMIRA [Suspect]
     Active Substance: ADALIMUMAB
     Indication: HIDRADENITIS
     Route: 058
     Dates: start: 20190619, end: 20200205

REACTIONS (5)
  - Purulent discharge [Unknown]
  - Fistula [Unknown]
  - Adverse event [Fatal]
  - Therapeutic product effect incomplete [Unknown]
  - Erythema [Unknown]

NARRATIVE: CASE EVENT DATE: 202002
